FAERS Safety Report 10075471 (Version 1)
Quarter: 2014Q2

REPORT INFORMATION
  Report Type: Spontaneous
  Country: US (occurrence: None)
  Receive Date: 20140411
  Receipt Date: 20140411
  Transmission Date: 20141212
  Serious: Yes (Hospitalization)
  Sender: FDA-Public Use
  Company Number: None

PATIENT
  Sex: 0

DRUGS (2)
  1. ERLOTINIB [Suspect]
     Indication: NON-SMALL CELL LUNG CANCER
     Route: 048
     Dates: start: 20140306, end: 20140331
  2. INC280 [Suspect]
     Indication: NON-SMALL CELL LUNG CANCER
     Route: 048
     Dates: start: 20140306, end: 20140331

REACTIONS (9)
  - Non-small cell lung cancer [None]
  - Malignant neoplasm progression [None]
  - Mental status changes [None]
  - Dyspnoea [None]
  - Tachycardia [None]
  - Tachypnoea [None]
  - Leukocytosis [None]
  - Breath sounds abnormal [None]
  - Wheezing [None]
